FAERS Safety Report 18259902 (Version 2)
Quarter: 2023Q2

REPORT INFORMATION
  Report Type: Report from Study
  Country: CA (occurrence: CA)
  Receive Date: 20200912
  Receipt Date: 20230510
  Transmission Date: 20230722
  Serious: Yes (Death, Hospitalization, Other)
  Sender: FDA-Public Use
  Company Number: CA-NOVARTISPH-NVSC2020CA247385

PATIENT
  Age: 76 Year
  Sex: Male

DRUGS (4)
  1. RUXOLITINIB [Suspect]
     Active Substance: RUXOLITINIB
     Indication: Myelofibrosis
     Dosage: 40 MG, QD
     Route: 048
  2. RUXOLITINIB [Suspect]
     Active Substance: RUXOLITINIB
     Dosage: 35 MG, QD
     Route: 048
  3. RUXOLITINIB [Suspect]
     Active Substance: RUXOLITINIB
     Dosage: 10 MG, BID
     Route: 065
  4. JADENU [Suspect]
     Active Substance: DEFERASIROX
     Indication: Myelofibrosis
     Dosage: 360 MG (360 MG X 3/DAY)
     Route: 048

REACTIONS (13)
  - COVID-19 [Fatal]
  - Immunodeficiency [Fatal]
  - Sepsis [Unknown]
  - Acute kidney injury [Unknown]
  - Pyrexia [Unknown]
  - Anaemia [Unknown]
  - Arthritis bacterial [Unknown]
  - Gout [Unknown]
  - Blood urea increased [Unknown]
  - Arthralgia [Unknown]
  - Fall [Unknown]
  - Limb injury [Unknown]
  - Inappropriate schedule of product administration [Unknown]
